FAERS Safety Report 12103925 (Version 1)
Quarter: 2016Q1

REPORT INFORMATION
  Report Type: Other
  Country: JP (occurrence: JP)
  Receive Date: 20160223
  Receipt Date: 20160223
  Transmission Date: 20160526
  Serious: Yes (Death, Other)
  Sender: FDA-Public Use
  Company Number: JP-ACTELION-A-CH2016-131558

PATIENT
  Age: 69 Year
  Sex: Female

DRUGS (1)
  1. TRACLEER [Suspect]
     Active Substance: BOSENTAN
     Indication: SCLERODERMA ASSOCIATED DIGITAL ULCER
     Dosage: UNK
     Route: 048
     Dates: end: 201111

REACTIONS (14)
  - Splenomegaly [Unknown]
  - Portal hypertension [Unknown]
  - Toe amputation [Unknown]
  - Abdominal distension [Unknown]
  - Osteomyelitis [Unknown]
  - Oesophageal varices haemorrhage [Unknown]
  - Biliary cirrhosis primary [Unknown]
  - Ascites [Unknown]
  - Leg amputation [Unknown]
  - Oedema peripheral [Unknown]
  - Biopsy liver [Unknown]
  - Shock haemorrhagic [Fatal]
  - Melaena [Unknown]
  - Skin ulcer [Unknown]

NARRATIVE: CASE EVENT DATE: 201205
